FAERS Safety Report 6359432-7 (Version None)
Quarter: 2009Q3

REPORT INFORMATION
  Report Type: 
  Country: None (occurrence: None)
  Receive Date: 20090917
  Receipt Date: 20090902
  Transmission Date: 20100115
  Serious: Yes (Other)
  Sender: FDA-Public Use
  Company Number: US-PFIZER INC-2009263889

PATIENT
  Age: 80 Year
  Sex: Male

DRUGS (1)
  1. GEODON [Suspect]
     Indication: AGITATION
     Dosage: 20 MG, UNK
     Route: 030

REACTIONS (3)
  - CEREBROVASCULAR ACCIDENT [None]
  - TORSADE DE POINTES [None]
  - VENTRICULAR FIBRILLATION [None]
